FAERS Safety Report 15661127 (Version 2)
Quarter: 2018Q4

REPORT INFORMATION
  Report Type: Spontaneous
  Country: US (occurrence: US)
  Receive Date: 20181127
  Receipt Date: 20181130
  Transmission Date: 20190205
  Serious: Yes (Hospitalization)
  Sender: FDA-Public Use
  Company Number: US-PFIZER INC-2018482880

PATIENT
  Age: 23 Year
  Sex: Male

DRUGS (1)
  1. ZOLOFT [Suspect]
     Active Substance: SERTRALINE HYDROCHLORIDE
     Indication: ANXIETY
     Dosage: 100 MG, 1X/DAY
     Route: 048
     Dates: start: 2018, end: 2018

REACTIONS (35)
  - Dizziness [Recovering/Resolving]
  - Diarrhoea [Unknown]
  - Hyperhidrosis [Unknown]
  - Confusional state [Unknown]
  - Pyrexia [Unknown]
  - Weight decreased [Unknown]
  - Seizure [Unknown]
  - Syncope [Unknown]
  - Decreased appetite [Unknown]
  - Tremor [Unknown]
  - Hyperreflexia [Unknown]
  - Somnolence [Unknown]
  - Libido decreased [Unknown]
  - Vomiting [Unknown]
  - Coordination abnormal [Unknown]
  - Nervousness [Unknown]
  - Renal pain [Recovering/Resolving]
  - Heart rate increased [Unknown]
  - Constipation [Unknown]
  - Dry mouth [Unknown]
  - Musculoskeletal stiffness [Unknown]
  - Hallucination [Unknown]
  - Balance disorder [Unknown]
  - Memory impairment [Unknown]
  - Insomnia [Not Recovered/Not Resolved]
  - Fatigue [Unknown]
  - Nausea [Unknown]
  - Headache [Unknown]
  - Asthenia [Unknown]
  - Alopecia [Unknown]
  - Disturbance in attention [Unknown]
  - Blood urine present [Recovering/Resolving]
  - Agitation [Unknown]
  - Ejaculation disorder [Unknown]
  - Hypopnoea [Unknown]

NARRATIVE: CASE EVENT DATE: 2018
